FAERS Safety Report 10213693 (Version 2)
Quarter: 2014Q2

REPORT INFORMATION
  Report Type: Spontaneous
  Country: US (occurrence: None)
  Receive Date: 20140530
  Receipt Date: 20140616
  Transmission Date: 20141212
  Serious: Yes (Disabling)
  Sender: FDA-Public Use
  Company Number: 2360116

PATIENT
  Age: 64 Year
  Sex: Female
  Weight: 81.82 kg

DRUGS (1)
  1. BUPIVACAINE HCL INJ, USP (BUPIVACAINE HYDROCHLORIDE) [Suspect]
     Indication: ANAESTHESIA
     Dosage: 1 ML MILLILITRE INTRADISCAL (INTRASPINAL)?
     Route: 024
     Dates: start: 20140325, end: 20140325

REACTIONS (9)
  - Paralysis [None]
  - Nervous system disorder [None]
  - Product quality issue [None]
  - Product contamination [None]
  - Therapeutic product ineffective [None]
  - Wrong technique in drug usage process [None]
  - Product formulation issue [None]
  - Incorrect product storage [None]
  - Incorrect dose administered [None]
